FAERS Safety Report 7870277 (Version 2)
Quarter: 2012Q4

REPORT INFORMATION
  Report Type: 
  Country: US (occurrence: US)
  Receive Date: 20110324
  Receipt Date: 20120910
  Transmission Date: 20130627
  Serious: Yes (Hospitalization)
  Sender: FDA-Public Use
  Company Number: PHHY2011US19940

PATIENT
  Age: 59 Year
  Sex: Male

DRUGS (1)
  1. GLEEVEC [Suspect]
     Indication: GASTRIC CANCER
     Dosage: 400 mg, QD
     Route: 048
     Dates: start: 20090831, end: 20120801

REACTIONS (2)
  - Ureteric injury [Unknown]
  - Renal disorder [Unknown]
